FAERS Safety Report 4698344-1 (Version None)
Quarter: 2005Q2

REPORT INFORMATION
  Report Type: 
  Country: None (occurrence: None)
  Receive Date: 20050621
  Receipt Date: 20050606
  Transmission Date: 20051028
  Serious: Yes (Hospitalization)
  Sender: FDA-Public Use
  Company Number: 202139

PATIENT
  Age: 45 Year
  Sex: Female
  Weight: 55.1 kg

DRUGS (4)
  1. RITUXAN [Suspect]
     Indication: NON-HODGKIN'S LYMPHOMA
     Dosage: SEE IMAGE
     Dates: start: 20010918, end: 20011010
  2. RITUXAN [Suspect]
     Indication: NON-HODGKIN'S LYMPHOMA
     Dosage: SEE IMAGE
     Dates: start: 20020201
  3. CHLORPHENIRAMINE (CHLOPRPHENIRAMINE MALEATE) [Concomitant]
  4. METHYLPREDNISOLONE [Concomitant]

REACTIONS (4)
  - CHILLS [None]
  - HEPATITIS B [None]
  - PYREXIA [None]
  - SPLENOMEGALY [None]
